FAERS Safety Report 5127648-3 (Version None)
Quarter: 2006Q4

REPORT INFORMATION
  Report Type: 
  Country: None (occurrence: None)
  Receive Date: 20061011
  Receipt Date: 20060925
  Transmission Date: 20070319
  Serious: Yes (Other)
  Sender: FDA-Public Use
  Company Number: 2006AL003023

PATIENT
  Age: 43 Year
  Sex: Female

DRUGS (3)
  1. DEXAMETHASONE ELIXIR USP, 0.5 MG/5 ML (ALPHARMA) (DEXAMETHASONE ELIXIR [Suspect]
     Indication: NEUROCYSTICERCOSIS
  2. ALBENDAZOLE [Concomitant]
  3. CLOBAZAM [Concomitant]

REACTIONS (7)
  - BRAIN OEDEMA [None]
  - CALCINOSIS [None]
  - CYST [None]
  - HEADACHE [None]
  - INFLAMMATION [None]
  - NERVOUS SYSTEM DISORDER [None]
  - PYREXIA [None]
